FAERS Safety Report 8344020-3 (Version None)
Quarter: 2012Q2

REPORT INFORMATION
  Report Type: 
  Country: None (occurrence: None)
  Receive Date: 20120508
  Receipt Date: 20101214
  Transmission Date: 20120825
  Serious: Yes (Hospitalization)
  Sender: FDA-Public Use
  Company Number: US-TEVA-2010006453

PATIENT
  Sex: Male

DRUGS (12)
  1. ALLOPURINOL [Concomitant]
  2. ENALAPRIL MALEATE [Concomitant]
  3. SAW PALMETTO [Concomitant]
  4. OMEPRAZOLE [Concomitant]
  5. ATENOLOL [Concomitant]
  6. DOXAZOSIN MESYLATE [Concomitant]
  7. VITAMIN TAB [Concomitant]
  8. RITUXAN [Concomitant]
     Indication: CHRONIC LYMPHOCYTIC LEUKAEMIA
  9. PHENERGAN [Concomitant]
  10. TREANDA [Suspect]
     Indication: CHRONIC LYMPHOCYTIC LEUKAEMIA
     Route: 042
     Dates: start: 20101109
  11. FERROUS SULFATE TAB [Concomitant]
  12. LOVAZA [Concomitant]

REACTIONS (6)
  - RENAL FAILURE [None]
  - BACTERIAL SEPSIS [None]
  - DIARRHOEA [None]
  - NAUSEA [None]
  - ANAEMIA [None]
  - RASH [None]
